FAERS Safety Report 8276976-1 (Version None)
Quarter: 2012Q2

REPORT INFORMATION
  Report Type: 
  Country: None (occurrence: None)
  Receive Date: 20120412
  Receipt Date: 20120402
  Transmission Date: 20120825
  Serious: Yes (Other)
  Sender: FDA-Public Use
  Company Number: ES-ROCHE-1057079

PATIENT
  Age: 34 Year
  Sex: Female

DRUGS (6)
  1. RITUXIMAB [Suspect]
     Indication: EPSTEIN-BARR VIRUS INFECTION
     Dosage: 4 DOSES
  2. THIOTEPA [Concomitant]
  3. MYCOPHENOLATE MOFETIL [Concomitant]
  4. CYCLOSPORINE [Concomitant]
  5. BUSULFAN [Concomitant]
  6. FLUDARABINE PHOSPHATE [Concomitant]

REACTIONS (1)
  - LYMPHATIC DISORDER [None]
